FAERS Safety Report 20000136 (Version 1)
Quarter: 2021Q4

REPORT INFORMATION
  Report Type: Spontaneous
  Country: US (occurrence: US)
  Receive Date: 20211027
  Receipt Date: 20211027
  Transmission Date: 20220303
  Serious: Yes (Hospitalization, Other)
  Sender: FDA-Public Use
  Company Number: US-BAUSCH-BL-2021-035111

PATIENT
  Sex: Female
  Weight: 80.81 kg

DRUGS (2)
  1. MESTINON [Suspect]
     Active Substance: PYRIDOSTIGMINE BROMIDE
     Indication: Myasthenia gravis
     Route: 065
  2. SOLIRIS [Suspect]
     Active Substance: ECULIZUMAB
     Indication: Myasthenia gravis
     Dosage: 10 MG/ML
     Route: 065

REACTIONS (6)
  - Diarrhoea [Unknown]
  - Diverticulitis [Unknown]
  - Dysphagia [Unknown]
  - Weight decreased [Unknown]
  - Bacterial sepsis [Unknown]
  - Intestinal resection [Unknown]
